FAERS Safety Report 7269673-2 (Version None)
Quarter: 2011Q1

REPORT INFORMATION
  Report Type: 
  Country: None (occurrence: None)
  Receive Date: 20110202
  Receipt Date: 20110128
  Transmission Date: 20110831
  Serious: Yes (Hospitalization)
  Sender: FDA-Public Use
  Company Number: US-ELI_LILLY_AND_COMPANY-US201101000240

PATIENT
  Sex: Male
  Weight: 116.6 kg

DRUGS (6)
  1. HYDROCHLOROTHIAZIDE [Concomitant]
     Indication: HYPERTENSION
     Dosage: UNK, UNK
     Dates: start: 20070101
  2. SIMVASTATIN [Concomitant]
     Indication: HYPERCHOLESTEROLAEMIA
     Dates: start: 20080101
  3. POTASSIUM [Concomitant]
     Indication: SUPPLEMENTATION THERAPY
     Dates: start: 20070101
  4. OLANZAPINE + FLUOXETINE HCL [Suspect]
     Indication: DEPRESSION
     Route: 048
     Dates: start: 20101222, end: 20110102
  5. LISINOPRIL [Concomitant]
     Indication: HYPERTENSION
     Dates: start: 20090101
  6. PAXIL [Concomitant]
     Dates: end: 20101220

REACTIONS (1)
  - ACUTE MYOCARDIAL INFARCTION [None]
